FAERS Safety Report 7786491-7 (Version None)
Quarter: 2011Q3

REPORT INFORMATION
  Report Type: 
  Country: None (occurrence: None)
  Receive Date: 20110929
  Receipt Date: 20110921
  Transmission Date: 20111222
  Serious: Yes (Life-Threatening, Hospitalization)
  Sender: FDA-Public Use
  Company Number: DK-PFIZER INC-2008072907

PATIENT
  Age: 34 Year
  Sex: Female
  Weight: 65 kg

DRUGS (10)
  1. CYTARABINE [Suspect]
  2. ONDANSETRON HCL [Interacting]
     Dosage: UNK
     Dates: start: 20080122, end: 20080125
  3. NOXAFIL [Interacting]
     Indication: HEPATOSPLENIC CANDIDIASIS
     Dosage: 200 MG, 4X/DAY
     Route: 048
     Dates: start: 20071020, end: 20080125
  4. ALLOPURINOL [Interacting]
     Dosage: UNK
     Route: 048
     Dates: end: 20080122
  5. VOGALENE [Interacting]
  6. POTASSIUM CHLORIDE [Interacting]
     Dosage: 750 MG, UNK
  7. DEXAMETHASONE [Interacting]
  8. ETOPOSIDE [Interacting]
  9. PANTOPRAZOLE SODIUM [Interacting]
     Dosage: UNK
     Dates: start: 20080122, end: 20080125
  10. ACYCLOVIR [Interacting]

REACTIONS (3)
  - DRUG INTERACTION [None]
  - ATRIOVENTRICULAR BLOCK SECOND DEGREE [None]
  - SINOATRIAL BLOCK [None]
